FAERS Safety Report 5587609-7 (Version None)
Quarter: 2008Q1

REPORT INFORMATION
  Report Type: 
  Country: None (occurrence: None)
  Receive Date: 20080110
  Receipt Date: 20071231
  Transmission Date: 20080703
  Serious: Yes (Death)
  Sender: FDA-Public Use
  Company Number: US-MERCK-0801USA00494

PATIENT
  Age: 58 Year
  Sex: Female

DRUGS (8)
  1. MORPHINE [Suspect]
     Route: 048
  2. METHOCARBAMOL [Suspect]
     Route: 048
  3. METHADONE HYDROCHLORIDE [Suspect]
     Route: 048
  4. LORAZEPAM [Suspect]
     Route: 048
  5. FLECAINIDE ACETATE [Suspect]
     Route: 048
  6. METOLAZONE [Suspect]
     Route: 048
  7. POTASSIUM CHLORIDE [Suspect]
     Route: 048
  8. HYDROCORTONE [Suspect]
     Route: 048

REACTIONS (4)
  - CARDIAC ARREST [None]
  - DRUG TOXICITY [None]
  - OVERDOSE [None]
  - RESPIRATORY ARREST [None]
